FAERS Safety Report 9396790 (Version 2)
Quarter: 2013Q3

REPORT INFORMATION
  Report Type: Spontaneous
  Country: JP (occurrence: JP)
  Receive Date: 20130712
  Receipt Date: 20130827
  Transmission Date: 20140515
  Serious: No
  Sender: FDA-Public Use
  Company Number: JP-009507513-1307JPN004982

PATIENT
  Age: 79 Year
  Sex: Male
  Weight: 52 kg

DRUGS (3)
  1. JANUVIA TABLETS 50MG [Suspect]
     Indication: DIABETES MELLITUS
     Dosage: 50 MG, QD
     Route: 048
     Dates: start: 20130514, end: 20130610
  2. PRAVASTATIN SODIUM [Concomitant]
     Indication: LIPIDS ABNORMAL
     Dosage: 10 MG, QD
     Route: 048
     Dates: start: 20130514, end: 20130610
  3. MAGMITT [Concomitant]
     Indication: CONSTIPATION
     Dosage: 990 MG, QD
     Route: 048
     Dates: start: 20130514, end: 20130610

REACTIONS (1)
  - Granulocyte count decreased [Recovered/Resolved]
